FAERS Safety Report 17313405 (Version 1)
Quarter: 2020Q1

REPORT INFORMATION
  Report Type: Spontaneous
  Country: US (occurrence: US)
  Receive Date: 20200124
  Receipt Date: 20200124
  Transmission Date: 20200409
  Serious: No
  Sender: FDA-Public Use
  Company Number: US-LUPIN PHARMACEUTICALS INC.-2019-08065

PATIENT
  Age: 73 Year
  Sex: Female

DRUGS (8)
  1. MORPHINE [Suspect]
     Active Substance: MORPHINE
     Indication: SPINAL ANAESTHESIA
     Dosage: 0.2 MILLIGRAM TOTAL, QD (INJECTED TO THE INTRATHECAL SPACE AT L3-4)
     Route: 037
  2. EPHEDRINE. [Concomitant]
     Active Substance: EPHEDRINE
     Indication: PROPHYLAXIS
     Dosage: 10 MILLIGRAM
     Route: 042
  3. PROPOFOL. [Concomitant]
     Active Substance: PROPOFOL
     Dosage: UNK (100 MCG/ KG/ MIN)
     Route: 042
  4. FENTANYL. [Suspect]
     Active Substance: FENTANYL
     Indication: ANALGESIC THERAPY
     Dosage: 100 MICROGRAM, QD
     Route: 042
  5. BUPIVACAINE. [Concomitant]
     Active Substance: BUPIVACAINE
     Indication: SPINAL ANAESTHESIA
     Dosage: UNK (2.75 ML OF 0.5 %)
     Route: 037
  6. FENTANYL. [Suspect]
     Active Substance: FENTANYL
     Dosage: 50 MICROGRAM, BID
     Route: 042
  7. CEFAZOLIN [Concomitant]
     Active Substance: CEFAZOLIN
     Indication: INFECTION PROPHYLAXIS
     Dosage: 2 GRAM
     Route: 042
  8. PROPOFOL. [Concomitant]
     Active Substance: PROPOFOL
     Indication: SEDATIVE THERAPY
     Dosage: UNK (80 MCG/ KG/ MIN)
     Route: 042

REACTIONS (1)
  - Confusional state [Recovered/Resolved]
